FAERS Safety Report 10748816 (Version 4)
Quarter: 2015Q1

REPORT INFORMATION
  Report Type: Spontaneous
  Country: JP (occurrence: JP)
  Receive Date: 20150129
  Receipt Date: 20150218
  Transmission Date: 20150721
  Serious: Yes (Life-Threatening, Other)
  Sender: FDA-Public Use
  Company Number: JP-PFIZER INC-2015037738

PATIENT
  Age: 74 Year
  Sex: Male

DRUGS (15)
  1. LYRICA [Suspect]
     Active Substance: PREGABALIN
     Dosage: 150 MG, 2X/DAY
     Route: 048
     Dates: start: 201406
  2. LYRICA [Suspect]
     Active Substance: PREGABALIN
     Dosage: 25 MG, 2X/DAY
     Route: 048
     Dates: start: 201403
  3. LYRICA [Suspect]
     Active Substance: PREGABALIN
     Dosage: 75 MG, 2X/DAY
     Route: 048
     Dates: start: 201404
  4. ADOAIR [Concomitant]
     Active Substance: FLUTICASONE PROPIONATE\SALMETEROL XINAFOATE
     Dosage: UNK
  5. URIEF [Concomitant]
     Active Substance: SILODOSIN
     Dosage: 8 MG, DAILY
     Route: 048
  6. CLARITHROMYCIN. [Concomitant]
     Active Substance: CLARITHROMYCIN
     Dosage: 200 MG, DAILY
     Route: 048
  7. MECOBALAMIN [Concomitant]
     Active Substance: METHYLCOBALAMIN
     Dosage: 1500 MG, DAILY
     Route: 048
  8. KAKKONTOU [Concomitant]
     Active Substance: HERBALS
     Dosage: 7.5 G, DAILY
     Route: 048
  9. LASIX [Concomitant]
     Active Substance: FUROSEMIDE
     Dosage: 20 MG, DAILY
     Route: 048
  10. BUPVERINE [Concomitant]
     Dosage: 10 MG, DAILY
     Route: 048
  11. LYRICA [Suspect]
     Active Substance: PREGABALIN
     Dosage: 25 MG, 2X/DAY
     Route: 048
     Dates: start: 201501
  12. MYORELARK [Concomitant]
     Dosage: 150 MG, DAILY
     Route: 048
  13. SENNOSIDE [Concomitant]
     Active Substance: SENNOSIDES
     Dosage: 24 MG, DAILY
     Route: 048
  14. BERAPROST [Concomitant]
     Active Substance: BERAPROST
     Dosage: 120 MG, DAILY
     Route: 048
  15. MAGMITT [Concomitant]
     Active Substance: MAGNESIUM OXIDE
     Dosage: 1000 MG, DAILY
     Route: 048

REACTIONS (5)
  - Oedema [Unknown]
  - Loss of consciousness [Unknown]
  - Sudden onset of sleep [Unknown]
  - Road traffic accident [Unknown]
  - Dizziness [Recovering/Resolving]

NARRATIVE: CASE EVENT DATE: 201403
